FAERS Safety Report 6534985-4 (Version None)
Quarter: 2010Q1

REPORT INFORMATION
  Report Type: 
  Country: None (occurrence: None)
  Receive Date: 20100111
  Receipt Date: 20100111
  Transmission Date: 20100710
  Serious: Yes (Life-Threatening, Hospitalization, Other)
  Sender: FDA-Public Use
  Company Number: None

PATIENT
  Sex: Male

DRUGS (1)
  1. QUININE SULFATE [Suspect]
     Dosage: 325 MG PO QHS
     Route: 048
     Dates: start: 20090804, end: 20090814

REACTIONS (8)
  - DIARRHOEA [None]
  - NAUSEA [None]
  - NEUTROPENIA [None]
  - PYREXIA [None]
  - SUPRAVENTRICULAR TACHYCARDIA [None]
  - SWELLING [None]
  - THROMBOCYTOPENIA [None]
  - VOMITING [None]
